FAERS Safety Report 11462706 (Version 1)
Quarter: 2015Q3

REPORT INFORMATION
  Report Type: Spontaneous
  Country: US (occurrence: US)
  Receive Date: 20150831
  Receipt Date: 20150831
  Transmission Date: 20151125
  Serious: No
  Sender: FDA-Public Use
  Company Number: US-ELI_LILLY_AND_COMPANY-US201101001915

PATIENT
  Age: 51 Year
  Sex: Female

DRUGS (6)
  1. CYMBALTA [Suspect]
     Active Substance: DULOXETINE HYDROCHLORIDE
     Dosage: 30 MG, DAILY (1/D)
  2. DURAGESIC [Concomitant]
     Active Substance: FENTANYL
     Indication: PAIN
  3. CYMBALTA [Suspect]
     Active Substance: DULOXETINE HYDROCHLORIDE
     Dosage: 60 MG, DAILY (1/D)
  4. CYMBALTA [Suspect]
     Active Substance: DULOXETINE HYDROCHLORIDE
     Dosage: UNK, UNKNOWN
  5. CYMBALTA [Suspect]
     Active Substance: DULOXETINE HYDROCHLORIDE
     Dosage: 90 MG, DAILY (1/D)
     Dates: end: 20101115
  6. CYMBALTA [Suspect]
     Active Substance: DULOXETINE HYDROCHLORIDE
     Indication: FIBROMYALGIA
     Dosage: 30 MG, DAILY (1/D)
     Dates: start: 20101012, end: 201010

REACTIONS (18)
  - Headache [Unknown]
  - Gastrointestinal hypomotility [Unknown]
  - Dysuria [Unknown]
  - Vomiting [Unknown]
  - Vertigo [Unknown]
  - Hypoaesthesia [Not Recovered/Not Resolved]
  - Crying [Unknown]
  - Impaired self-care [Unknown]
  - Confusional state [Unknown]
  - Abdominal pain upper [Unknown]
  - Dizziness [Unknown]
  - Chest pain [Unknown]
  - Drug withdrawal syndrome [Not Recovered/Not Resolved]
  - Incorrect dose administered [Recovered/Resolved]
  - Fall [Recovered/Resolved]
  - Hypoaesthesia oral [Not Recovered/Not Resolved]
  - Intentional product misuse [Recovered/Resolved]
  - Constipation [Unknown]
